FAERS Safety Report 7469091-8 (Version None)
Quarter: 2011Q2

REPORT INFORMATION
  Report Type: 
  Country: None (occurrence: None)
  Receive Date: 20110505
  Receipt Date: 20110505
  Transmission Date: 20111010
  Serious: Yes (Hospitalization)
  Sender: FDA-Public Use
  Company Number: None

PATIENT
  Age: 3 Year
  Sex: Male
  Weight: 12.7 kg

DRUGS (1)
  1. PHENOBARBITAL SRT [Suspect]
     Indication: EPILEPSY
     Dosage: 6ML BID PO
     Route: 048
     Dates: start: 20110331, end: 20110502

REACTIONS (4)
  - TOXICITY TO VARIOUS AGENTS [None]
  - PRODUCT DEPOSIT [None]
  - LETHARGY [None]
  - PRODUCT CONTAMINATION PHYSICAL [None]
